FAERS Safety Report 7115993-1 (Version None)
Quarter: 2010Q4

REPORT INFORMATION
  Report Type: 
  Country: None (occurrence: None)
  Receive Date: 20101122
  Receipt Date: 20101118
  Transmission Date: 20110411
  Serious: Yes (Hospitalization, Other)
  Sender: FDA-Public Use
  Company Number: DE-ABBOTT-10P-062-0683548-00

PATIENT
  Sex: Female
  Weight: 63 kg

DRUGS (4)
  1. HUMIRA [Suspect]
     Indication: RHEUMATOID ARTHRITIS
     Route: 058
     Dates: start: 20100503, end: 20101101
  2. LANTAREL [Concomitant]
     Indication: RHEUMATOID ARTHRITIS
     Dates: start: 20091026, end: 20101101
  3. METYPRED [Concomitant]
     Indication: RHEUMATOID ARTHRITIS
     Dates: start: 20091026, end: 20100101
  4. FOLIC ACID [Concomitant]
     Indication: RHEUMATOID ARTHRITIS
     Dates: start: 20091026, end: 20101101

REACTIONS (2)
  - LYMPH NODE TUBERCULOSIS [None]
  - LYMPHADENOPATHY [None]
